FAERS Safety Report 21661999 (Version 3)
Quarter: 2023Q2

REPORT INFORMATION
  Report Type: Spontaneous
  Country: DE (occurrence: DE)
  Receive Date: 20221130
  Receipt Date: 20230509
  Transmission Date: 20230721
  Serious: Yes (Other)
  Sender: FDA-Public Use
  Company Number: None

PATIENT
  Sex: Female

DRUGS (9)
  1. IBUPROFEN [Suspect]
     Active Substance: IBUPROFEN
     Indication: Rheumatic disorder
     Dosage: UNK
     Route: 065
  2. OLMESARTAN [Suspect]
     Active Substance: OLMESARTAN
     Indication: Product used for unknown indication
     Dosage: 1 DOSAGE FORM
     Route: 065
  3. DICLOFENAC [Suspect]
     Active Substance: DICLOFENAC
     Indication: Rheumatic disorder
     Dosage: 2 DOSAGE FORM, QMO
     Route: 065
  4. XARELTO [Suspect]
     Active Substance: RIVAROXABAN
     Indication: Product used for unknown indication
     Dosage: 1 DOSAGE FORM (10)
     Route: 065
     Dates: start: 20220826
  5. LEQVIO [Suspect]
     Active Substance: INCLISIRAN SODIUM
     Indication: Product used for unknown indication
     Dosage: UNKNOWN
     Route: 065
     Dates: start: 20220826
  6. ASPIRIN [Suspect]
     Active Substance: ASPIRIN
     Indication: Product used for unknown indication
     Dosage: UNK UNK, QD (100)
     Route: 065
     Dates: start: 2016
  7. BUPRENORPHINE [Suspect]
     Active Substance: BUPRENORPHINE
     Indication: Neuralgia
     Dosage: UNKNOWN
     Route: 065
     Dates: start: 2017
  8. DULOXETINE HYDROCHLORIDE [Suspect]
     Active Substance: DULOXETINE HYDROCHLORIDE
     Indication: Neuralgia
     Dosage: 1 DOSAGE FORM (30)
     Route: 065
     Dates: start: 202209, end: 202210
  9. PRALUENT [Suspect]
     Active Substance: ALIROCUMAB
     Indication: Product used for unknown indication
     Dosage: UNK
     Route: 065
     Dates: start: 202201, end: 202208

REACTIONS (15)
  - Intra-abdominal haematoma [Unknown]
  - Spinal stenosis [Unknown]
  - Immune system disorder [Unknown]
  - Haematoma [Unknown]
  - Hypersensitivity [Unknown]
  - Fibromyalgia [Unknown]
  - Waist circumference increased [Unknown]
  - Myalgia [Not Recovered/Not Resolved]
  - Movement disorder [Not Recovered/Not Resolved]
  - Coronavirus infection [Unknown]
  - Induration [Not Recovered/Not Resolved]
  - Haemorrhage [Unknown]
  - Injection site pain [Unknown]
  - Contusion [Unknown]
  - Morphoea [Unknown]

NARRATIVE: CASE EVENT DATE: 20220801
